APPROVED DRUG PRODUCT: HYDRA-ZIDE
Active Ingredient: HYDRALAZINE HYDROCHLORIDE; HYDROCHLOROTHIAZIDE
Strength: 25MG;25MG
Dosage Form/Route: CAPSULE;ORAL
Application: A088957 | Product #001
Applicant: STRIDES PHARMA INTERNATIONAL AG
Approved: Oct 21, 1985 | RLD: No | RS: No | Type: DISCN